FAERS Safety Report 18562146 (Version 2)
Quarter: 2021Q1

REPORT INFORMATION
  Report Type: Spontaneous
  Country: EC (occurrence: EC)
  Receive Date: 20201201
  Receipt Date: 20210212
  Transmission Date: 20210419
  Serious: Yes (Other)
  Sender: FDA-Public Use
  Company Number: EC-US-PROVELL PHARMACEUTICALS LLC-9201419

PATIENT
  Sex: Female

DRUGS (1)
  1. LEVOTHYROXINE. [Suspect]
     Active Substance: LEVOTHYROXINE
     Indication: HYPOTHYROIDISM
     Dosage: FOR LIFE TIME

REACTIONS (3)
  - Madarosis [Unknown]
  - Alopecia [Unknown]
  - Breast cancer [Unknown]
